FAERS Safety Report 14260073 (Version 2)
Quarter: 2020Q2

REPORT INFORMATION
  Report Type: Spontaneous
  Country: US (occurrence: US)
  Receive Date: 20171207
  Receipt Date: 20200423
  Transmission Date: 20200713
  Serious: Yes (Death)
  Sender: FDA-Public Use
  Company Number: US-ASTRAZENECA-2017SF21671

PATIENT
  Age: 24911 Day
  Sex: Male
  Weight: 93 kg

DRUGS (66)
  1. METFORMIN [Concomitant]
     Active Substance: METFORMIN HYDROCHLORIDE
  2. FLAXSEED [Concomitant]
     Active Substance: FLAX SEED
     Indication: GENERAL PHYSICAL CONDITION
     Dates: start: 20131105, end: 20140306
  3. GLIMEPIRIDE. [Concomitant]
     Active Substance: GLIMEPIRIDE
  4. FOSINOPRIL [Concomitant]
     Active Substance: FOSINOPRIL
  5. GLUCAGON. [Concomitant]
     Active Substance: GLUCAGON
  6. ZOSYN [Concomitant]
     Active Substance: PIPERACILLIN SODIUM\TAZOBACTAM SODIUM
  7. GLYCOPYRROLATE. [Concomitant]
     Active Substance: GLYCOPYRROLATE
  8. CEFACLOR. [Concomitant]
     Active Substance: CEFACLOR
  9. HYDROXYZINE [Concomitant]
     Active Substance: HYDROXYZINE HYDROCHLORIDE
  10. MAGNESIUM OXIDE. [Concomitant]
     Active Substance: MAGNESIUM OXIDE
  11. BYETTA [Suspect]
     Active Substance: EXENATIDE
     Indication: DIABETES MELLITUS
     Route: 065
     Dates: start: 2002
  12. BYDUREON [Suspect]
     Active Substance: EXENATIDE
     Indication: DIABETES MELLITUS
     Route: 065
     Dates: start: 201204, end: 201601
  13. ATORVASTATIN [Concomitant]
     Active Substance: ATORVASTATIN
     Indication: BLOOD CHOLESTEROL INCREASED
     Dates: start: 20141122, end: 20151222
  14. IRON [Concomitant]
     Active Substance: IRON
     Indication: GENERAL PHYSICAL CONDITION
     Dates: start: 20141008
  15. ASPIRIN. [Concomitant]
     Active Substance: ASPIRIN
  16. LIDOCAINE. [Concomitant]
     Active Substance: LIDOCAINE
  17. SODIUM BICARBONATE. [Concomitant]
     Active Substance: SODIUM BICARBONATE
  18. EPINEPHRINE. [Concomitant]
     Active Substance: EPINEPHRINE
  19. BACTRIM [Concomitant]
     Active Substance: SULFAMETHOXAZOLE\TRIMETHOPRIM
  20. LYRICA [Concomitant]
     Active Substance: PREGABALIN
  21. IPRATROPIUM BROMIDE. [Concomitant]
     Active Substance: IPRATROPIUM BROMIDE
  22. ZOLPIDEM TARTRATE. [Concomitant]
     Active Substance: ZOLPIDEM TARTRATE
  23. QUETIAPINE. [Concomitant]
     Active Substance: QUETIAPINE
  24. LANTUS [Concomitant]
     Active Substance: INSULIN GLARGINE
  25. ONDANSETRON [Concomitant]
     Active Substance: ONDANSETRON
  26. MAGNESIUM HYDROXIDE. [Concomitant]
     Active Substance: MAGNESIUM HYDROXIDE
  27. CEPASTAT [Concomitant]
     Active Substance: PHENOL
  28. VERSED [Concomitant]
     Active Substance: MIDAZOLAM HYDROCHLORIDE
  29. MELOXICAM. [Concomitant]
     Active Substance: MELOXICAM
  30. INDOMETHACIN. [Concomitant]
     Active Substance: INDOMETHACIN
  31. BYETTA [Suspect]
     Active Substance: EXENATIDE
     Indication: DIABETES MELLITUS
     Route: 065
     Dates: start: 20100507, end: 201204
  32. HYDROCHLOROTHIAZIDE. [Concomitant]
     Active Substance: HYDROCHLOROTHIAZIDE
  33. GLUTOSE [Concomitant]
     Active Substance: DEXTROSE
  34. DILAUDID [Concomitant]
     Active Substance: HYDROMORPHONE HYDROCHLORIDE
  35. RISPERIDONE. [Concomitant]
     Active Substance: RISPERIDONE
  36. ADVAIR DISKUS [Concomitant]
     Active Substance: FLUTICASONE PROPIONATE\SALMETEROL XINAFOATE
  37. FAMOTIDINE. [Concomitant]
     Active Substance: FAMOTIDINE
  38. TRAMADOL. [Concomitant]
     Active Substance: TRAMADOL
  39. LOZENGE [Concomitant]
     Active Substance: NICOTINE
  40. VITAMIN B12 [Concomitant]
     Active Substance: CYANOCOBALAMIN
  41. BUPROPION. [Concomitant]
     Active Substance: BUPROPION
  42. HYDROCODONE-ACETAMINOPHEN [Concomitant]
     Active Substance: ACETAMINOPHEN\HYDROCODONE
  43. SODIUM CHLORIDE. [Concomitant]
     Active Substance: SODIUM CHLORIDE
  44. ALUMINIUM [Concomitant]
     Active Substance: ALUMINUM
  45. POTASSIUM SULPHATE [Concomitant]
  46. FENTANYL. [Concomitant]
     Active Substance: FENTANYL
  47. PROPOFOL. [Concomitant]
     Active Substance: PROPOFOL
  48. PITRESSIN [Concomitant]
     Active Substance: VASOPRESSIN
  49. NITROGLYCERIN. [Concomitant]
     Active Substance: NITROGLYCERIN
  50. LINAGLIPTIN [Concomitant]
     Active Substance: LINAGLIPTIN
  51. BYETTA [Suspect]
     Active Substance: EXENATIDE
     Indication: DIABETES MELLITUS
     Route: 065
     Dates: start: 201204
  52. TESTOSTERONE. [Concomitant]
     Active Substance: TESTOSTERONE
     Indication: BLOOD TESTOSTERONE DECREASED
     Dates: start: 20140306
  53. LEVOTHYROXINE. [Concomitant]
     Active Substance: LEVOTHYROXINE
  54. SIMETHICONE (DIMETHICONE) [Concomitant]
     Active Substance: DIMETHICONE
  55. FERROUS SULFATE. [Concomitant]
     Active Substance: FERROUS SULFATE
  56. FLUZONE [Concomitant]
     Active Substance: INFLUENZA A VIRUS A/CALIFORNIA/7/2009 X-179A (H1N1) ANTIGEN (FORMALDEHYDE INACTIVATED)\INFLUENZA A VIRUS A/VICTORIA/210/2009 X-187 (H3N2) ANTIGEN (FORMALDEHYDE INACTIVATED)\INFLUENZA B VIRUS B/BRISBANE/60/2008 ANTIGEN (FORMALDEHYDE INACTIVATED)
  57. ALBUMIN [Concomitant]
     Active Substance: ALBUMIN HUMAN
  58. VITAMIN C [Concomitant]
     Active Substance: ASCORBIC ACID
  59. DICLOFENAC [Concomitant]
     Active Substance: DICLOFENAC
  60. HUMALOG [Concomitant]
     Active Substance: INSULIN LISPRO
     Indication: DIABETES MELLITUS
     Dates: start: 20141008
  61. ACETAMINOPHEN-CODEINE [Concomitant]
     Active Substance: ACETAMINOPHEN\CODEINE PHOSPHATE
  62. POLYETHYLENE GLYCOL [Concomitant]
     Active Substance: POLYETHYLENE GLYCOLS
  63. KAYEXALATE [Concomitant]
     Active Substance: SODIUM POLYSTYRENE SULFONATE
  64. NOREPINEPHRINE. [Concomitant]
     Active Substance: NOREPINEPHRINE
  65. TRIMETHOPRIM. [Concomitant]
     Active Substance: TRIMETHOPRIM
  66. GUAIFENESIN. [Concomitant]
     Active Substance: GUAIFENESIN

REACTIONS (2)
  - Small intestinal obstruction [Fatal]
  - Pancreatic carcinoma [Fatal]

NARRATIVE: CASE EVENT DATE: 20151224
